FAERS Safety Report 10540779 (Version 1)
Quarter: 2014Q4

REPORT INFORMATION
  Report Type: Spontaneous
  Country: US (occurrence: None)
  Receive Date: 20141023
  Receipt Date: 20141023
  Transmission Date: 20150529
  Serious: Yes (Death, Hospitalization)
  Sender: FDA-Public Use
  Company Number: None

PATIENT
  Age: 72 Year
  Sex: Male
  Weight: 57.4 kg

DRUGS (3)
  1. PENTOSTATIN (DEOXYCOFORMYCIN, DCF) [Suspect]
     Active Substance: PENTOSTATIN
     Dosage: DOSE REDUCED AFTER 1 WEEK DELAY?
  2. RITUXIMAB (MOAB C2B8 ANTI CD20, CHIMERIC) [Suspect]
     Active Substance: RITUXIMAB
     Dosage: IV CONTINOUSLY OVER 4 HOURS FOR 1 DAY, TITRATED AT 100MG/30 MINS UP TO A MAX. OF 400MG/HR.
  3. CYCLOPHOSPHAMIDE. [Suspect]
     Active Substance: CYCLOPHOSPHAMIDE
     Dosage: DOSE WAS REDUCED AFTER 1 WEEK DELAY DUE TO GRANULOCYTES ,1000.?

REACTIONS (9)
  - Anaemia [None]
  - Diarrhoea [None]
  - Sepsis [None]
  - Dehydration [None]
  - Chronic lymphocytic leukaemia [None]
  - Cerebrovascular accident [None]
  - Cough [None]
  - Nausea [None]
  - Sinusitis [None]

NARRATIVE: CASE EVENT DATE: 20110411
